FAERS Safety Report 22208729 (Version 1)
Quarter: 2023Q2

REPORT INFORMATION
  Report Type: Spontaneous
  Country: CN (occurrence: CN)
  Receive Date: 20230413
  Receipt Date: 20230413
  Transmission Date: 20230722
  Serious: Yes (Hospitalization, Other)
  Sender: FDA-Public Use
  Company Number: CN-BAYER-2023A045542

PATIENT
  Age: 83 Year
  Sex: Female
  Weight: 84 kg

DRUGS (4)
  1. GLUCOBAY [Interacting]
     Active Substance: ACARBOSE
     Indication: Diabetic complication
     Dosage: 0.1 G, TID
     Route: 048
     Dates: start: 20220701, end: 20221224
  2. GLUCOBAY [Interacting]
     Active Substance: ACARBOSE
     Indication: Type 2 diabetes mellitus
  3. REPAGLINIDE [Interacting]
     Active Substance: REPAGLINIDE
     Indication: Diabetic complication
     Dosage: 1 MG, TID
     Route: 048
     Dates: start: 20220701, end: 20221224
  4. REPAGLINIDE [Interacting]
     Active Substance: REPAGLINIDE
     Indication: Type 2 diabetes mellitus

REACTIONS (7)
  - Hypoglycaemic coma [Recovering/Resolving]
  - Depressed level of consciousness [Recovered/Resolved]
  - Muscular weakness [Not Recovered/Not Resolved]
  - Speech disorder [Recovering/Resolving]
  - Cold sweat [None]
  - Chest discomfort [Recovering/Resolving]
  - Tachypnoea [None]

NARRATIVE: CASE EVENT DATE: 20221222
